FAERS Safety Report 10052059 (Version 2)
Quarter: 2014Q3

REPORT INFORMATION
  Report Type: Spontaneous
  Country: IT (occurrence: IT)
  Receive Date: 20140402
  Receipt Date: 20140717
  Transmission Date: 20150326
  Serious: Yes (Other)
  Sender: FDA-Public Use
  Company Number: IT-BRISTOL-MYERS SQUIBB COMPANY-20561619

PATIENT
  Age: 48 Year
  Sex: Female

DRUGS (3)
  1. FEVARIN [Suspect]
     Active Substance: FLUVOXAMINE MALEATE
     Dosage: TABLETS?6 DOSAGE UNIT
     Route: 048
     Dates: start: 20140304, end: 20140304
  2. ABILIFY DISCMELT [Suspect]
     Active Substance: ARIPIPRAZOLE
     Dosage: 19 DOSEAGE UNIT
     Route: 048
     Dates: start: 20140304, end: 20140304
  3. MINIAS [Suspect]
     Active Substance: LORMETAZEPAM
     Dosage: TABLETS?25 DOSAGE UNIT
     Route: 048
     Dates: start: 20140304, end: 20140304

REACTIONS (2)
  - Psychomotor skills impaired [Unknown]
  - Drug abuse [Unknown]

NARRATIVE: CASE EVENT DATE: 20140304
